FAERS Safety Report 9254239 (Version 2)
Quarter: 2013Q2

REPORT INFORMATION
  Report Type: Report from Study
  Country: AU (occurrence: AU)
  Receive Date: 20130425
  Receipt Date: 20130506
  Transmission Date: 20140414
  Serious: Yes (Other)
  Sender: FDA-Public Use
  Company Number: PHHY2013AU039148

PATIENT
  Age: 38 Year
  Sex: Male
  Weight: 154 kg

DRUGS (4)
  1. CLOZARIL [Suspect]
     Indication: SCHIZOPHRENIA
     Dosage: 150 MG, UNK (NOCTE)
     Route: 048
     Dates: start: 2008
  2. BENZTROPINE [Concomitant]
     Dosage: 2 MG, QD
  3. PERINDOPRIL [Concomitant]
     Dosage: 4 MG, MANE
  4. BICILLIN LA [Concomitant]
     Dosage: 900 MG,  (IMI MONTHLY)
     Route: 030

REACTIONS (5)
  - Bundle branch block right [Unknown]
  - Electrocardiogram QT prolonged [Unknown]
  - Anxiety [Unknown]
  - Sinus tachycardia [Unknown]
  - Weight increased [Unknown]
